FAERS Safety Report 7122169-0 (Version None)
Quarter: 2010Q4

REPORT INFORMATION
  Report Type: 
  Country: None (occurrence: None)
  Receive Date: 20101124
  Receipt Date: 20101117
  Transmission Date: 20110411
  Serious: Yes (Hospitalization)
  Sender: FDA-Public Use
  Company Number: JP-PFIZER INC-2010132703

PATIENT
  Age: 76 Year
  Sex: Male
  Weight: 52.4 kg

DRUGS (4)
  1. ZITHROMAC [Suspect]
     Indication: TOOTH DISORDER
     Dosage: 250 MG, 2X/DAY
     Route: 048
     Dates: start: 20100909
  2. ZITHROMAC [Suspect]
     Indication: INFECTION PROPHYLAXIS
     Dosage: UNK
     Route: 048
     Dates: start: 20100930
  3. ZITHROMAC [Suspect]
     Dosage: UNK
     Route: 048
     Dates: start: 20101007
  4. CIBENOL [Suspect]
     Indication: ATRIAL FIBRILLATION
     Dosage: UNK
     Dates: start: 20100528, end: 20101015

REACTIONS (1)
  - INTERSTITIAL LUNG DISEASE [None]
